FAERS Safety Report 15567106 (Version 1)
Quarter: 2018Q4

REPORT INFORMATION
  Report Type: Spontaneous
  Country: SI (occurrence: SI)
  Receive Date: 20181030
  Receipt Date: 20181030
  Transmission Date: 20190205
  Serious: Yes (Other)
  Sender: FDA-Public Use
  Company Number: SI-BAYER-2018-196242

PATIENT
  Sex: Female

DRUGS (3)
  1. ASPIRIN PROTECT 100 MG [Suspect]
     Active Substance: ASPIRIN
     Dosage: UNK
  2. FUROSEMIDE. [Concomitant]
     Active Substance: FUROSEMIDE
  3. AMIODARONE [Concomitant]
     Active Substance: AMIODARONE

REACTIONS (1)
  - Cardiac failure [None]
